FAERS Safety Report 21200449 (Version 3)
Quarter: 2022Q3

REPORT INFORMATION
  Report Type: Spontaneous
  Country: FR (occurrence: FR)
  Receive Date: 20220811
  Receipt Date: 20220920
  Transmission Date: 20221026
  Serious: Yes (Death, Other)
  Sender: FDA-Public Use
  Company Number: FR-SANOFI-01204954

PATIENT

DRUGS (1)
  1. RIFAMPIN [Suspect]
     Active Substance: RIFAMPIN
     Indication: Fungal infection
     Dosage: 800 MG, QD
     Route: 042

REACTIONS (1)
  - Death [Fatal]
